FAERS Safety Report 12894876 (Version 1)
Quarter: 2016Q4

REPORT INFORMATION
  Report Type: Spontaneous
  Country: JP (occurrence: JP)
  Receive Date: 20161028
  Receipt Date: 20161028
  Transmission Date: 20170207
  Serious: Yes (Other)
  Sender: FDA-Public Use
  Company Number: JP-BAUSCH-BL-2016-026147

PATIENT
  Age: 78 Year
  Sex: Male

DRUGS (3)
  1. DOCETAXEL. [Suspect]
     Active Substance: DOCETAXEL
     Route: 065
  2. FLUOROURACIL. [Suspect]
     Active Substance: FLUOROURACIL
     Indication: HYPOPHARYNGEAL CANCER
     Route: 065
  3. NEDAPLATIN [Suspect]
     Active Substance: NEDAPLATIN
     Indication: HYPOPHARYNGEAL CANCER
     Route: 065

REACTIONS (1)
  - Hepatitis B [Recovering/Resolving]
